FAERS Safety Report 10172039 (Version 2)
Quarter: 2014Q2

REPORT INFORMATION
  Report Type: Report from Study
  Country: MX (occurrence: MX)
  Receive Date: 20140515
  Receipt Date: 20140604
  Transmission Date: 20141212
  Serious: Yes (Death, Hospitalization, Other)
  Sender: FDA-Public Use
  Company Number: PHHY2014MX058362

PATIENT
  Age: 76 Year
  Sex: Female

DRUGS (1)
  1. STALEVO [Suspect]
     Indication: PARKINSON^S DISEASE
     Dosage: 3 DF (3 TABLETS), DAILY
     Route: 048

REACTIONS (4)
  - Respiratory arrest [Fatal]
  - Hip fracture [Unknown]
  - Head injury [Unknown]
  - Fall [Unknown]
